FAERS Safety Report 12984442 (Version 3)
Quarter: 2020Q3

REPORT INFORMATION
  Report Type: Spontaneous
  Country: FR (occurrence: FR)
  Receive Date: 20161129
  Receipt Date: 20200731
  Transmission Date: 20201102
  Serious: Yes (Death, Life-Threatening, Hospitalization, Other)
  Sender: FDA-Public Use
  Company Number: FR-DSJP-DSE-2016-139401

PATIENT

DRUGS (7)
  1. CITALOPRAM [Suspect]
     Active Substance: CITALOPRAM HYDROBROMIDE
     Indication: COMPLETED SUICIDE
     Dosage: UNK
  2. NORDAZEPAM [Suspect]
     Active Substance: NORDAZEPAM
     Indication: COMPLETED SUICIDE
     Dosage: UNK
  3. ZOLPIDEM [Suspect]
     Active Substance: ZOLPIDEM TARTRATE
     Indication: COMPLETED SUICIDE
     Dosage: UNK
  4. SEVIKAR [Suspect]
     Active Substance: AMLODIPINE BESYLATE\OLMESARTAN MEDOXOMIL
     Indication: COMPLETED SUICIDE
     Dosage: 129 DF, TOTAL
     Route: 048
  5. LYSANXIA [Suspect]
     Active Substance: PRAZEPAM
     Indication: COMPLETED SUICIDE
     Dosage: 420 MG, TOTAL
     Route: 048
  6. SEROPLEX [Suspect]
     Active Substance: ESCITALOPRAM OXALATE
     Indication: COMPLETED SUICIDE
     Dosage: 280 MG, TOTAL
     Route: 048
  7. ATARAX [Suspect]
     Active Substance: HYDROXYZINE HYDROCHLORIDE
     Indication: COMPLETED SUICIDE
     Dosage: 700 MG, TOTAL
     Route: 048

REACTIONS (14)
  - Completed suicide [Fatal]
  - Gastrointestinal ischaemia [Fatal]
  - Acute hepatic failure [Fatal]
  - Intentional overdose [Fatal]
  - Bezoar [Recovered/Resolved]
  - Toxicity to various agents [Fatal]
  - Shock [Fatal]
  - Skin necrosis [Unknown]
  - Hyperlactacidaemia [Unknown]
  - Acute kidney injury [Fatal]
  - Coma [Unknown]
  - Cardiogenic shock [Fatal]
  - Multiple organ dysfunction syndrome [Fatal]
  - Metabolic acidosis [Unknown]
